FAERS Safety Report 13353781 (Version 1)
Quarter: 2017Q1

REPORT INFORMATION
  Report Type: Spontaneous
  Country: US (occurrence: US)
  Receive Date: 20170320
  Receipt Date: 20170320
  Transmission Date: 20170429
  Serious: Yes (Other)
  Sender: FDA-Public Use
  Company Number: None

PATIENT
  Age: 59 Year
  Sex: Female
  Weight: 50.85 kg

DRUGS (10)
  1. ALLEGRA-D [Concomitant]
     Active Substance: FEXOFENADINE\PSEUDOEPHEDRINE
  2. HUMALOG [Concomitant]
     Active Substance: INSULIN LISPRO
  3. NITROGLYCERIN. [Concomitant]
     Active Substance: NITROGLYCERIN
  4. D AND CALIUM VITAMINS [Concomitant]
  5. LYRICA [Concomitant]
     Active Substance: PREGABALIN
  6. LEVIMIR INSULIN [Concomitant]
  7. B [Concomitant]
  8. OXCARBAZEPINE. [Suspect]
     Active Substance: OXCARBAZEPINE
     Indication: SEIZURE
     Dosage: ?          QUANTITY:300 TABLET(S);?EVERY 12 HOURS ORAL
     Route: 048
     Dates: start: 20170227, end: 20170314
  9. EFFLIENT [Concomitant]
  10. Q-10 [Concomitant]

REACTIONS (6)
  - Myalgia [None]
  - Insomnia [None]
  - Headache [None]
  - Crying [None]
  - Fatigue [None]
  - Confusional state [None]

NARRATIVE: CASE EVENT DATE: 20170306
